FAERS Safety Report 14289440 (Version 1)
Quarter: 2017Q4

REPORT INFORMATION
  Report Type: Spontaneous
  Country: US (occurrence: US)
  Receive Date: 20171214
  Receipt Date: 20171214
  Transmission Date: 20180321
  Serious: Yes (Disabling)
  Sender: FDA-Public Use
  Company Number: None

PATIENT
  Age: 47 Year
  Sex: Female
  Weight: 83.25 kg

DRUGS (6)
  1. NORCO [Concomitant]
     Active Substance: ACETAMINOPHEN\HYDROCODONE BITARTRATE
  2. EA HYDROCODON APAP [Suspect]
     Active Substance: ACETAMINOPHEN\HYDROCODONE BITARTRATE
     Indication: PAIN
     Dosage: ?          QUANTITY:90 TABLET(S);?
     Route: 048
     Dates: start: 20171101
  3. VALIUM [Concomitant]
     Active Substance: DIAZEPAM
  4. LIDOCAINE. [Concomitant]
     Active Substance: LIDOCAINE
  5. NAPROXEN. [Concomitant]
     Active Substance: NAPROXEN
  6. GAS PILLS [Concomitant]

REACTIONS (7)
  - Tongue discomfort [None]
  - Tongue pruritus [None]
  - Throat irritation [None]
  - Malaise [None]
  - Drug ineffective [None]
  - Feeling hot [None]
  - Product substitution issue [None]

NARRATIVE: CASE EVENT DATE: 20171101
